FAERS Safety Report 17350469 (Version 2)
Quarter: 2024Q2

REPORT INFORMATION
  Report Type: Other
  Country: GB (occurrence: None)
  Receive Date: 20200130
  Receipt Date: 20240521
  Transmission Date: 20240716
  Serious: Yes (Hospitalization)
  Sender: FDA-Public Use
  Company Number: GB-ROCHE-2532276

PATIENT
  Age: 50 Year
  Sex: Male

DRUGS (2)
  1. OCREVUS [Suspect]
     Active Substance: OCRELIZUMAB
     Indication: Relapsing-remitting multiple sclerosis
     Route: 041
     Dates: start: 20190610
  2. OCREVUS [Suspect]
     Active Substance: OCRELIZUMAB
     Dosage: LAST INFUSION RECEIVED IN 06/NOV/2023
     Route: 041

REACTIONS (2)
  - Lower respiratory tract infection [Recovered/Resolved]
  - Urinary tract infection [Recovered/Resolved]

NARRATIVE: CASE EVENT DATE: 20190726
